FAERS Safety Report 7990947-1 (Version None)
Quarter: 2011Q4

REPORT INFORMATION
  Report Type: 
  Country: None (occurrence: None)
  Receive Date: 20111219
  Receipt Date: 20111031
  Transmission Date: 20120403
  Serious: Yes (Hospitalization)
  Sender: FDA-Public Use
  Company Number: US-ROCHE-1022306

PATIENT
  Sex: Female
  Weight: 73.6 kg

DRUGS (11)
  1. DOXAZOSIN MESYLATE [Concomitant]
     Route: 048
     Dates: start: 20100101
  2. SODIUM BICARBONATE [Concomitant]
     Indication: GASTROOESOPHAGEAL REFLUX DISEASE
     Route: 048
     Dates: start: 20100101
  3. CLONIDINE [Concomitant]
     Indication: HYPERTENSION
     Route: 048
  4. SIMVASTATIN [Concomitant]
     Indication: BLOOD CHOLESTEROL
     Dosage: QTTS
     Route: 048
  5. LANTUS [Concomitant]
     Indication: DIABETES MELLITUS
     Dosage: 10 UNITS AT BED
     Route: 058
     Dates: start: 20100101
  6. FUROSEMIDE [Concomitant]
     Route: 048
     Dates: start: 20100101
  7. RANIBIZUMAB [Suspect]
     Indication: DIABETIC RETINAL OEDEMA
     Route: 050
     Dates: start: 20110623
  8. ASPIRIN [Concomitant]
     Indication: ANTICOAGULANT THERAPY
     Route: 048
     Dates: start: 20100101
  9. AMLODIPINE [Concomitant]
     Indication: HYPERTENSION
     Route: 048
     Dates: start: 20100101
  10. CRESTOR [Concomitant]
     Indication: BLOOD CHOLESTEROL
     Dates: start: 20100101
  11. HUMALOG [Concomitant]
     Indication: DIABETES MELLITUS
     Route: 058

REACTIONS (1)
  - PNEUMONIA [None]
